FAERS Safety Report 15798930 (Version 3)
Quarter: 2019Q2

REPORT INFORMATION
  Report Type: Report from Study
  Country: US (occurrence: US)
  Receive Date: 20190108
  Receipt Date: 20190405
  Transmission Date: 20190711
  Serious: Yes (Death)
  Sender: FDA-Public Use
  Company Number: US-PFIZER INC-2019008622

PATIENT
  Age: 76 Year
  Sex: Female
  Weight: 70.75 kg

DRUGS (4)
  1. IRINOTECAN HCL [Suspect]
     Active Substance: IRINOTECAN HYDROCHLORIDE
     Indication: SMALL CELL LUNG CANCER
     Dosage: UNK UNK, CYCLIC 1
     Route: 041
     Dates: start: 20180305
  2. DINUTUXIMAB [Suspect]
     Active Substance: DINUTUXIMAB
     Indication: SMALL CELL LUNG CANCER
     Dosage: UNK UNK, CYCLIC 1
     Route: 041
     Dates: start: 20180305
  3. IRINOTECAN HCL [Suspect]
     Active Substance: IRINOTECAN HYDROCHLORIDE
     Dosage: 530 MG, TOTAL DAILY DOSE, CYCLIC 13
     Route: 041
     Dates: start: 20181114, end: 20181114
  4. DINUTUXIMAB [Suspect]
     Active Substance: DINUTUXIMAB
     Dosage: 31 MG, TOTAL DAILY DOSE, CYCLIC 14
     Route: 041
     Dates: start: 20181213, end: 20181213

REACTIONS (1)
  - Cardio-respiratory arrest [Fatal]

NARRATIVE: CASE EVENT DATE: 20181225
